FAERS Safety Report 23522658 (Version 1)
Quarter: 2024Q1

REPORT INFORMATION
  Report Type: Spontaneous
  Country: US (occurrence: US)
  Receive Date: 20240214
  Receipt Date: 20240214
  Transmission Date: 20240410
  Serious: No
  Sender: FDA-Public Use
  Company Number: US-BAYER-2024A020063

PATIENT

DRUGS (4)
  1. CLARITIN [Suspect]
     Active Substance: LORATADINE
     Indication: Vomiting
  2. CLARITIN [Suspect]
     Active Substance: LORATADINE
     Indication: Epistaxis
  3. CLARITIN [Suspect]
     Active Substance: LORATADINE
     Indication: Eye haemorrhage
  4. CLARITIN [Suspect]
     Active Substance: LORATADINE
     Indication: Allergy to animal

REACTIONS (1)
  - Drug ineffective for unapproved indication [Unknown]
